FAERS Safety Report 4335634-6 (Version None)
Quarter: 2004Q2

REPORT INFORMATION
  Report Type: 
  Country: None (occurrence: None)
  Receive Date: 20040406
  Receipt Date: 20040324
  Transmission Date: 20050107
  Serious: Yes (Hospitalization)
  Sender: FDA-Public Use
  Company Number: K200400432

PATIENT
  Age: 44 Year
  Sex: Male
  Weight: 73 kg

DRUGS (4)
  1. SYNERCID [Suspect]
     Dosage: 550MG, Q 8 HOURS, INTRAVENOUS
     Route: 042
     Dates: start: 20020715, end: 20020806
  2. OXAPROZIN [Concomitant]
  3. PANTOPRAZOLE (PANTOPRAZOLE) [Concomitant]
  4. FERROUS SULFATE TAB [Concomitant]

REACTIONS (2)
  - ANAEMIA [None]
  - MYELODYSPLASTIC SYNDROME [None]
